FAERS Safety Report 7274651-3 (Version None)
Quarter: 2011Q1

REPORT INFORMATION
  Report Type: 
  Country: None (occurrence: None)
  Receive Date: 20110204
  Receipt Date: 20110202
  Transmission Date: 20110831
  Serious: Yes (Hospitalization, Other)
  Sender: FDA-Public Use
  Company Number: FR-B.I. PHARMACEUTICALS,INC./RIDGEFIELD-2011-DE-00572GD

PATIENT
  Age: 17 Year
  Sex: Female

DRUGS (3)
  1. ALBUTEROL [Suspect]
     Indication: DYSPNOEA
     Dosage: NUMEROUS
     Route: 055
  2. IPRATROPIUMBROMID SALBUTAMOLSULFAT [Suspect]
     Indication: ASTHMA
     Dosage: 3 ANZ
     Route: 055
  3. PARACETAMOL [Concomitant]
     Route: 048

REACTIONS (6)
  - HYPERGLYCAEMIA [None]
  - HYPOKALAEMIA [None]
  - DRUG INEFFECTIVE [None]
  - LACTIC ACIDOSIS [None]
  - RESPIRATORY ALKALOSIS [None]
  - SINUS TACHYCARDIA [None]
